FAERS Safety Report 7305225-3 (Version None)
Quarter: 2011Q1

REPORT INFORMATION
  Report Type: 
  Country: None (occurrence: None)
  Receive Date: 20110222
  Receipt Date: 20110217
  Transmission Date: 20110831
  Serious: Yes (Hospitalization, Other)
  Sender: FDA-Public Use
  Company Number: US-PFIZER INC-2010152293

PATIENT
  Sex: Female

DRUGS (18)
  1. FLEXERIL [Concomitant]
     Indication: PAIN
     Dosage: UNK
     Dates: start: 20030101
  2. SYNTHROID [Concomitant]
     Indication: HYPOTHYROIDISM
     Dosage: UNK
     Dates: start: 20060101
  3. CYANOCOBALAMIN [Concomitant]
     Indication: AMNESIA
     Dosage: UNK
     Dates: start: 20000101
  4. PROMETHAZINE [Concomitant]
     Indication: NAUSEA
     Dosage: UNK
     Dates: start: 20020101
  5. ELAVIL [Concomitant]
     Indication: SLEEP DISORDER
     Dosage: UNK
     Dates: start: 20030101
  6. PRILOSEC [Concomitant]
     Indication: GASTROOESOPHAGEAL REFLUX DISEASE
     Dosage: UNK
     Dates: start: 20060101
  7. PROMETHAZINE [Concomitant]
     Indication: VOMITING
  8. ADVAIR [Concomitant]
     Indication: ASTHMA
     Dosage: UNK
     Dates: start: 20040101
  9. XANAX [Concomitant]
     Indication: ANXIETY
     Dosage: UNK
     Dates: start: 20030101
  10. ALBUTEROL [Concomitant]
     Indication: ASTHMA
     Dosage: UNK
     Dates: start: 20040101
  11. LORTAB [Concomitant]
     Indication: PAIN
     Dosage: UNK
     Dates: start: 20060101
  12. POTASSIUM CHLORIDE [Concomitant]
     Indication: BLOOD POTASSIUM DECREASED
     Dosage: UNK
     Dates: start: 20030101
  13. LOVENOX [Concomitant]
     Indication: DEEP VEIN THROMBOSIS
     Dosage: UNK
     Dates: start: 20040101
  14. CHANTIX [Suspect]
     Indication: SMOKING CESSATION THERAPY
     Dosage: STARTING MONTH PACK AND FOUR CONTINUING MONTH PACKS
     Dates: start: 20080101, end: 20080501
  15. XANAX [Concomitant]
     Indication: CONVULSION
  16. KLOR-CON [Concomitant]
     Indication: BLOOD POTASSIUM DECREASED
     Dosage: UNK
     Dates: start: 20030101
  17. LASIX [Concomitant]
     Indication: OEDEMA
     Dosage: UNK
     Dates: start: 20030101
  18. MONTELUKAST [Concomitant]
     Indication: ASTHMA
     Dosage: UNK
     Dates: start: 20070101

REACTIONS (6)
  - HOMICIDAL IDEATION [None]
  - INTENTIONAL OVERDOSE [None]
  - CONDITION AGGRAVATED [None]
  - ANXIETY [None]
  - SUICIDE ATTEMPT [None]
  - DEPRESSION [None]
